FAERS Safety Report 17207225 (Version 2)
Quarter: 2020Q1

REPORT INFORMATION
  Report Type: Spontaneous
  Country: US (occurrence: US)
  Receive Date: 20191227
  Receipt Date: 20200205
  Transmission Date: 20200409
  Serious: Yes (Other)
  Sender: FDA-Public Use
  Company Number: NVSC2019US079190

PATIENT
  Age: 75 Year
  Sex: Female

DRUGS (1)
  1. BIMATOPROST. [Suspect]
     Active Substance: BIMATOPROST
     Indication: MADAROSIS
     Dosage: 0.03 %, QD (1X DAILY)
     Route: 065
     Dates: start: 20190324, end: 20191223

REACTIONS (5)
  - Lacrimation increased [Unknown]
  - Eye haemorrhage [Unknown]
  - Peritoneal haemorrhage [Unknown]
  - Eye pruritus [Unknown]
  - Alopecia [Unknown]

NARRATIVE: CASE EVENT DATE: 20191223
